FAERS Safety Report 14999450 (Version 1)
Quarter: 2018Q2

REPORT INFORMATION
  Report Type: Spontaneous
  Country: US (occurrence: US)
  Receive Date: 20180612
  Receipt Date: 20180612
  Transmission Date: 20180711
  Serious: No
  Sender: FDA-Public Use
  Company Number: US-PFIZER INC-2018238122

PATIENT
  Age: 62 Year
  Sex: Female
  Weight: 49.89 kg

DRUGS (1)
  1. IBRANCE [Suspect]
     Active Substance: PALBOCICLIB
     Indication: BREAST CANCER METASTATIC
     Dosage: 125 MG, CYCLIC(D 1-21 Q 28 DAYS)
     Route: 048
     Dates: start: 201805

REACTIONS (3)
  - Platelet count decreased [Unknown]
  - Nausea [Unknown]
  - White blood cell count decreased [Unknown]

NARRATIVE: CASE EVENT DATE: 2018
